FAERS Safety Report 23408153 (Version 1)
Quarter: 2024Q1

REPORT INFORMATION
  Report Type: Spontaneous
  Country: US (occurrence: None)
  Receive Date: 20240117
  Receipt Date: 20240117
  Transmission Date: 20240410
  Serious: No
  Sender: FDA-Public Use
  Company Number: US-ARIS GLOBAL-MDD202302-000653

PATIENT
  Age: 64 Year
  Sex: Male
  Weight: 97.52 kg

DRUGS (2)
  1. MYOBLOC [Suspect]
     Active Substance: RIMABOTULINUMTOXINB
     Indication: Torticollis
     Dosage: 100CC
     Dates: start: 20221009
  2. MYOBLOC [Suspect]
     Active Substance: RIMABOTULINUMTOXINB
     Dosage: 150CC
     Dates: start: 2023

REACTIONS (2)
  - Irritability [Recovering/Resolving]
  - Headache [Unknown]

NARRATIVE: CASE EVENT DATE: 20221009
